FAERS Safety Report 5890239-0 (Version None)
Quarter: 2008Q3

REPORT INFORMATION
  Report Type: 
  Country: None (occurrence: None)
  Receive Date: 20080919
  Receipt Date: 20080909
  Transmission Date: 20090109
  Serious: Yes (Life-Threatening)
  Sender: FDA-Public Use
  Company Number: GB-PFIZER INC-2008076389

PATIENT
  Sex: Female
  Weight: 51 kg

DRUGS (2)
  1. TRANEXAMIC ACID (IV) [Suspect]
     Indication: ENDARTERECTOMY
     Dates: start: 20080715, end: 20080715
  2. PROPOFOL [Concomitant]

REACTIONS (1)
  - CONVULSION [None]
